FAERS Safety Report 6112771-7 (Version None)
Quarter: 2009Q1

REPORT INFORMATION
  Report Type: 
  Country: None (occurrence: None)
  Receive Date: 20090312
  Receipt Date: 20090310
  Transmission Date: 20090719
  Serious: Yes (Hospitalization)
  Sender: FDA-Public Use
  Company Number: FR-BRISTOL-MYERS SQUIBB COMPANY-14539530

PATIENT
  Age: 66 Year
  Sex: Female

DRUGS (7)
  1. COUMADIN [Suspect]
     Dates: end: 20081227
  2. ALDALIX [Concomitant]
  3. TEMERIT [Concomitant]
  4. ELISOR [Concomitant]
  5. KEPPRA [Concomitant]
  6. CLONAZEPAM [Concomitant]
  7. INIPOMP [Concomitant]

REACTIONS (3)
  - INTERNATIONAL NORMALISED RATIO ABNORMAL [None]
  - RECTAL HAEMORRHAGE [None]
  - RENAL FAILURE ACUTE [None]
